FAERS Safety Report 10930294 (Version 5)
Quarter: 2017Q1

REPORT INFORMATION
  Report Type: Spontaneous
  Country: US (occurrence: US)
  Receive Date: 20150319
  Receipt Date: 20170227
  Transmission Date: 20170428
  Serious: No
  Sender: FDA-Public Use
  Company Number: US-PFIZER INC-2015091439

PATIENT
  Age: 38 Year
  Sex: Female
  Weight: 92 kg

DRUGS (14)
  1. TIZANIDINE. [Concomitant]
     Active Substance: TIZANIDINE
     Indication: FIBROMYALGIA
     Dosage: 12 MG, 1X/DAY (TAKES 3 OF THE 4MG TABLETS ONE TIME A DAY, AT NIGHT)
  2. TYLENOL ARTHRITIS PAIN [Concomitant]
     Active Substance: ACETAMINOPHEN
     Indication: HEADACHE
  3. LIDOCAINE. [Concomitant]
     Active Substance: LIDOCAINE
     Indication: INTERVERTEBRAL DISC DEGENERATION
     Dosage: UNK, 1X/DAY
  4. TIZANIDINE. [Concomitant]
     Active Substance: TIZANIDINE
     Indication: MUSCLE RELAXANT THERAPY
     Dosage: 4 MG, ONE AT NIGHT
  5. TRAZODONE [Concomitant]
     Active Substance: TRAZODONE HYDROCHLORIDE
     Indication: FIBROMYALGIA
     Dosage: 75 MG, 1X/DAY AT NIGHT
  6. LYRICA [Suspect]
     Active Substance: PREGABALIN
     Indication: INTERVERTEBRAL DISC DEGENERATION
     Dosage: 100 MG, 3X/DAY
  7. TYLENOL [Concomitant]
     Active Substance: ACETAMINOPHEN
     Indication: PAIN
     Dosage: UNK (TAKES OCCASIONALLY)
  8. VITAMIN B2 [Concomitant]
     Active Substance: RIBOFLAVIN
     Indication: MIGRAINE
     Dosage: 400 MG, 1X/DAY
  9. SERTRALINE [Concomitant]
     Active Substance: SERTRALINE HYDROCHLORIDE
     Indication: MIGRAINE
     Dosage: 25 MG, 1X/DAY
  10. YAZ [Concomitant]
     Active Substance: DROSPIRENONE\ETHINYL ESTRADIOL
     Indication: HORMONE THERAPY
     Dosage: 1 DF, DAILY
  11. TYLENOL [Concomitant]
     Active Substance: ACETAMINOPHEN
     Indication: ARTHRITIS
     Dosage: 50 MG, 2X/DAY
  12. TRAZODONE [Concomitant]
     Active Substance: TRAZODONE HYDROCHLORIDE
     Dosage: 37.5 MG, 1X/DAY (TAKES 1/2 TABLET ONCE A DAY)
  13. TYLENOL ARTHRITIS PAIN [Concomitant]
     Active Substance: ACETAMINOPHEN
     Indication: FIBROMYALGIA
     Dosage: 1300 MG, 3X/DAY (TAKES 2 OF THE 650MG 3 TIMES A DAY)
  14. LYRICA [Suspect]
     Active Substance: PREGABALIN
     Indication: FIBROMYALGIA
     Dosage: 75 MG, 3X/DAY
     Dates: end: 201503

REACTIONS (13)
  - Condition aggravated [Unknown]
  - Condition aggravated [Not Recovered/Not Resolved]
  - Pain [Not Recovered/Not Resolved]
  - Feeling abnormal [Unknown]
  - Withdrawal syndrome [Unknown]
  - Nerve compression [Not Recovered/Not Resolved]
  - Intentional product use issue [Unknown]
  - Insomnia [Unknown]
  - Temporomandibular joint syndrome [Unknown]
  - Neck pain [Unknown]
  - Pain in extremity [Unknown]
  - Fall [Unknown]
  - Spinal column stenosis [Not Recovered/Not Resolved]

NARRATIVE: CASE EVENT DATE: 201503
